FAERS Safety Report 14868964 (Version 2)
Quarter: 2018Q2

REPORT INFORMATION
  Report Type: Spontaneous
  Country: DE (occurrence: DE)
  Receive Date: 20180509
  Receipt Date: 20180614
  Transmission Date: 20180711
  Serious: Yes (Hospitalization, Other)
  Sender: FDA-Public Use
  Company Number: PHHY2018DE004449

PATIENT
  Age: 66 Year
  Sex: Female
  Weight: 51.3 kg

DRUGS (5)
  1. CARBOPLATIN. [Suspect]
     Active Substance: CARBOPLATIN
     Indication: OVARIAN CANCER
     Dosage: UNK
     Route: 065
  2. PANTOZOL [Concomitant]
     Active Substance: PANTOPRAZOLE SODIUM
     Indication: PRODUCT USED FOR UNKNOWN INDICATION
     Dosage: 40 MG, QD (1-0-0)
     Route: 065
  3. AVASTIN [Suspect]
     Active Substance: BEVACIZUMAB
     Indication: OVARIAN CANCER
     Dosage: 810 MG, Q3W
     Route: 042
     Dates: start: 20170405
  4. PACLITAXEL. [Suspect]
     Active Substance: PACLITAXEL
     Indication: OVARIAN CANCER
     Dosage: UNK
     Route: 065
  5. BISOPROLOL [Concomitant]
     Active Substance: BISOPROLOL
     Indication: PRODUCT USED FOR UNKNOWN INDICATION
     Dosage: 2.5 MG, QD (1-0-0)
     Route: 065

REACTIONS (12)
  - Seizure [Recovered/Resolved]
  - Cerebral atrophy [Unknown]
  - Breath sounds abnormal [Unknown]
  - Chronic kidney disease [Unknown]
  - Cholelithiasis [Unknown]
  - Osteonecrosis [Recovered/Resolved with Sequelae]
  - General physical health deterioration [Unknown]
  - Somnolence [Unknown]
  - Arrhythmia [Unknown]
  - Emphysema [Unknown]
  - Dry skin [Unknown]
  - Pleural fibrosis [Unknown]

NARRATIVE: CASE EVENT DATE: 20180120
